FAERS Safety Report 9067360 (Version 1)
Quarter: 2013Q1

REPORT INFORMATION
  Report Type: Report from Study
  Country: US (occurrence: US)
  Receive Date: 20130128
  Receipt Date: 20130128
  Transmission Date: 20140127
  Serious: No
  Sender: FDA-Public Use
  Company Number: US-ABBOTT-11P-163-0723542-00

PATIENT
  Age: 59 None
  Sex: Female
  Weight: 67.19 kg

DRUGS (8)
  1. HUMIRA 40 MG/0.8 ML PEN [Suspect]
     Indication: CROHN^S DISEASE
     Route: 058
     Dates: start: 201102
  2. LEVOTHYROXINE [Concomitant]
     Indication: HYPOTHYROIDISM
     Route: 048
  3. PROZAC [Concomitant]
     Indication: DEPRESSION
  4. TAGAMET [Concomitant]
     Indication: GASTROOESOPHAGEAL REFLUX DISEASE
  5. FLEXERIL [Concomitant]
     Indication: MUSCLE SPASMS
  6. OXYCODONE [Concomitant]
     Indication: FIBROMYALGIA
  7. OXYCODONE [Concomitant]
     Indication: BACK PAIN
  8. NITROGLYCERIN [Concomitant]
     Indication: CHEST PAIN
     Route: 060

REACTIONS (8)
  - Lyme disease [Not Recovered/Not Resolved]
  - Balance disorder [Not Recovered/Not Resolved]
  - Feeling abnormal [Not Recovered/Not Resolved]
  - Feeling drunk [Not Recovered/Not Resolved]
  - Feeling abnormal [Not Recovered/Not Resolved]
  - Dyspnoea [Recovered/Resolved]
  - Dysarthria [Recovered/Resolved]
  - Stress [Unknown]
